FAERS Safety Report 5455206-X (Version None)
Quarter: 2007Q3

REPORT INFORMATION
  Report Type: 
  Country: None (occurrence: None)
  Receive Date: 20070918
  Receipt Date: 20070907
  Transmission Date: 20080115
  Serious: Yes (Hospitalization)
  Sender: FDA-Public Use
  Company Number: LU-JNJFOC-20070901030

PATIENT
  Age: 68 Year
  Sex: Female

DRUGS (4)
  1. RISPERDAL [Suspect]
     Indication: PSYCHOTIC DISORDER
  2. RISPERDAL [Suspect]
     Indication: DEPRESSION
  3. REMERGON [Concomitant]
  4. REMERGON [Concomitant]

REACTIONS (8)
  - AKATHISIA [None]
  - APHASIA [None]
  - CONFUSIONAL STATE [None]
  - HYPERTHERMIA [None]
  - MUSCLE RIGIDITY [None]
  - NEUROLEPTIC MALIGNANT SYNDROME [None]
  - PNEUMONIA [None]
  - SEROTONIN SYNDROME [None]
